FAERS Safety Report 4579799-X (Version None)
Quarter: 2005Q1

REPORT INFORMATION
  Report Type: 
  Country: None (occurrence: None)
  Receive Date: 20050210
  Receipt Date: 20050128
  Transmission Date: 20050727
  Serious: Yes (Other)
  Sender: FDA-Public Use
  Company Number: 2005022128

PATIENT
  Age: 65 Year
  Sex: Female

DRUGS (3)
  1. CELECOXIB (CELECOXIB) [Suspect]
     Indication: INFLAMMATION
     Dosage: 400 MG (200 MG, 2 IN 1 D), ORAL
     Route: 048
     Dates: start: 20041227, end: 20050102
  2. CALCIUM DOBESILATE (CALCIUM DOBESILATE) [Suspect]
     Indication: VENOUS INSUFFICIENCY
     Dosage: 500 MG (500 MG, 1 IN 1 D), ORAL
     Route: 048
     Dates: start: 20041227, end: 20050102
  3. LOSARTAN (LOSARTAN) [Concomitant]

REACTIONS (3)
  - HYPERTENSIVE EMERGENCY [None]
  - MALAISE [None]
  - TREMOR [None]
